FAERS Safety Report 7018604-9 (Version None)
Quarter: 2010Q3

REPORT INFORMATION
  Report Type: 
  Country: None (occurrence: None)
  Receive Date: 20100922
  Receipt Date: 20100906
  Transmission Date: 20110219
  Serious: Yes (Hospitalization)
  Sender: FDA-Public Use
  Company Number: 2009002758

PATIENT
  Age: 76 Year
  Sex: Male
  Weight: 80 kg

DRUGS (28)
  1. ERLOTINIB HYDROCHLORIDE [Suspect]
     Indication: LUNG SQUAMOUS CELL CARCINOMA STAGE UNSPECIFIED
     Dosage: (150 MG,QD),ORAL ; (100 MG,QD), ORAL; (100 MG,QD,), ORAL
     Route: 048
     Dates: start: 20090904, end: 20091210
  2. ERLOTINIB HYDROCHLORIDE [Suspect]
     Indication: LUNG SQUAMOUS CELL CARCINOMA STAGE UNSPECIFIED
     Dosage: (150 MG,QD),ORAL ; (100 MG,QD), ORAL; (100 MG,QD,), ORAL
     Route: 048
     Dates: start: 20100212, end: 20100326
  3. ERLOTINIB HYDROCHLORIDE [Suspect]
     Indication: LUNG SQUAMOUS CELL CARCINOMA STAGE UNSPECIFIED
     Dosage: (150 MG,QD),ORAL ; (100 MG,QD), ORAL; (100 MG,QD,), ORAL
     Route: 048
     Dates: start: 20090612, end: 20100611
  4. ERLOTINIB HYDROCHLORIDE [Suspect]
     Indication: LUNG SQUAMOUS CELL CARCINOMA STAGE UNSPECIFIED
     Dosage: (150 MG,QD),ORAL ; (100 MG,QD), ORAL; (100 MG,QD,), ORAL
     Route: 048
     Dates: start: 20100416
  5. HARNAL (TAMSULOSIN HYDROCHLORIDE) [Concomitant]
  6. NITRODERM [Concomitant]
  7. RINDERON (BETHAMETHASONE) [Concomitant]
  8. OMEPRAZOLE [Concomitant]
  9. POVIDONE IODINE [Concomitant]
  10. LEVOFLOXACIN [Concomitant]
  11. PREDNISOLONE [Concomitant]
  12. LAC-B [Concomitant]
  13. LOXOPROFEN SODIUM (LOXOPROFEN SODIUM) [Concomitant]
  14. ALENDRONIC ACID (ALENDRONIC ACID) [Concomitant]
  15. AMARYL [Concomitant]
  16. LASIX [Concomitant]
  17. SPIRONOLACTONE [Concomitant]
  18. LIPITOR [Concomitant]
  19. FAMOTIDINE [Concomitant]
  20. DECADRON [Concomitant]
  21. LANSOPRAZOLE [Concomitant]
  22. ROCEPHIN [Concomitant]
  23. DEPAKENE [Concomitant]
  24. LOSARTAN POTASSIUM [Concomitant]
  25. FLORID (MICONAZOLE NITRATE) [Concomitant]
  26. CODEINE SUL TAB [Concomitant]
  27. DIGOXIN [Concomitant]
  28. PYDOXAL (PYRIDOXAL PHOSPHATE) [Concomitant]

REACTIONS (14)
  - ABDOMINAL DISTENSION [None]
  - ARRHYTHMIA [None]
  - CARDIOMEGALY [None]
  - DECREASED APPETITE [None]
  - EPILEPSY [None]
  - FACE OEDEMA [None]
  - GLOMERULONEPHRITIS [None]
  - INFLAMMATORY MARKER INCREASED [None]
  - METASTASES TO CENTRAL NERVOUS SYSTEM [None]
  - PLEURAL EFFUSION [None]
  - PNEUMONIA [None]
  - PULMONARY TUBERCULOSIS [None]
  - RASH [None]
  - STOMATITIS [None]
